FAERS Safety Report 7019073-5 (Version None)
Quarter: 2010Q3

REPORT INFORMATION
  Report Type: 
  Country: None (occurrence: None)
  Receive Date: 20100928
  Receipt Date: 20100923
  Transmission Date: 20110219
  Serious: Yes (Death, Life-Threatening, Hospitalization, Disabling, Other)
  Sender: FDA-Public Use
  Company Number: A0882970A

PATIENT
  Age: 60 Year
  Sex: Male

DRUGS (6)
  1. LAMICTAL [Suspect]
     Dosage: 200MG UNKNOWN
     Route: 065
  2. CYMBALTA [Concomitant]
  3. LEXAPRO [Concomitant]
  4. LYRICA [Concomitant]
  5. OXYCONTIN [Concomitant]
     Dosage: 40MG TWICE PER DAY
  6. PERCOCET [Concomitant]

REACTIONS (2)
  - LUNG NEOPLASM MALIGNANT [None]
  - MYOCARDIAL INFARCTION [None]
